FAERS Safety Report 5613737-3 (Version None)
Quarter: 2008Q1

REPORT INFORMATION
  Report Type: 
  Country: None (occurrence: None)
  Receive Date: 20080205
  Receipt Date: 20080122
  Transmission Date: 20080703
  Serious: Yes (Hospitalization, Other)
  Sender: FDA-Public Use
  Company Number: FR-AMGEN-UK261826

PATIENT
  Sex: Male

DRUGS (4)
  1. NEULASTA [Suspect]
     Indication: CHEMOTHERAPY
     Route: 058
     Dates: start: 20070903
  2. TAXOL [Concomitant]
     Route: 065
  3. CISPLATIN [Concomitant]
     Route: 065
  4. FLUOROURACIL [Concomitant]
     Route: 065

REACTIONS (2)
  - LEUKOCYTOSIS [None]
  - METASTASES TO LUNG [None]
